FAERS Safety Report 5525898-5 (Version None)
Quarter: 2007Q4

REPORT INFORMATION
  Report Type: 
  Country: None (occurrence: None)
  Receive Date: 20071126
  Receipt Date: 20071115
  Transmission Date: 20080405
  Serious: Yes (Hospitalization)
  Sender: FDA-Public Use
  Company Number: US-PFIZER INC-2007096335

PATIENT
  Sex: Male
  Weight: 54 kg

DRUGS (3)
  1. GENOTROPIN [Suspect]
     Indication: HYPOPITUITARISM
     Dosage: DAILY DOSE:2.4MG
     Route: 058
  2. MARIJUANA [Suspect]
  3. ALLEGRA [Concomitant]

REACTIONS (1)
  - PSYCHOTIC DISORDER [None]
